FAERS Safety Report 26120789 (Version 2)
Quarter: 2025Q4

REPORT INFORMATION
  Report Type: Report from Study
  Country: TH (occurrence: TH)
  Receive Date: 20251204
  Receipt Date: 20251208
  Transmission Date: 20260119
  Serious: Yes (Death)
  Sender: DAIICHI
  Company Number: TH-DSJP-DS-2025-181341-TH

PATIENT
  Sex: Female

DRUGS (2)
  1. ENHERTU [Suspect]
     Active Substance: FAM-TRASTUZUMAB DERUXTECAN-NXKI
     Indication: HER2 positive breast cancer
     Dosage: UNK
     Route: 042
     Dates: start: 20250421, end: 20251026
  2. ENHERTU [Suspect]
     Active Substance: FAM-TRASTUZUMAB DERUXTECAN-NXKI
     Indication: Breast cancer metastatic

REACTIONS (1)
  - Drug intolerance [Fatal]
